FAERS Safety Report 23738775 (Version 3)
Quarter: 2024Q4

REPORT INFORMATION
  Report Type: Spontaneous
  Country: FR (occurrence: FR)
  Receive Date: 20240413
  Receipt Date: 20241209
  Transmission Date: 20250115
  Serious: Yes (Hospitalization, Other)
  Sender: AUROBINDO
  Company Number: FR-AFSSAPS-AVNT2024000208

PATIENT
  Age: 23 Year
  Sex: Male

DRUGS (6)
  1. ALPRAZOLAM [Suspect]
     Active Substance: ALPRAZOLAM
     Indication: Product used for unknown indication
     Dosage: UNK(30 CPS /J LE SOIR)
     Route: 048
     Dates: start: 202406
  2. ZOLPIDEM [Suspect]
     Active Substance: ZOLPIDEM TARTRATE
     Indication: Product used for unknown indication
     Dosage: UNK(3 ? 20 CPS /J)
     Route: 048
     Dates: start: 202301
  3. KETAMINE [Suspect]
     Active Substance: KETAMINE
     Indication: Product used for unknown indication
     Dosage: UNK (300MG 1 ? 3 X/J)
     Route: 030
     Dates: start: 202401
  4. MORPHINE [Suspect]
     Active Substance: MORPHINE
     Indication: Product used for unknown indication
     Dosage: UNK (40 ? 50 MG LE SOIR)
     Route: 042
     Dates: start: 2018
  5. MORPHINE [Suspect]
     Active Substance: MORPHINE
     Dosage: UNK (40 ? 50 MG LE SOIR)
     Route: 030
     Dates: start: 2018
  6. TRAMADOL [Suspect]
     Active Substance: TRAMADOL
     Indication: Product used for unknown indication
     Dosage: UNK (12 CPS DE 50 MG LE SOIR)
     Route: 048
     Dates: start: 202211

REACTIONS (3)
  - Seizure [Recovered/Resolved]
  - Drug use disorder [Not Recovered/Not Resolved]
  - Product use in unapproved indication [Not Recovered/Not Resolved]

NARRATIVE: CASE EVENT DATE: 20241120
